FAERS Safety Report 4615957-3 (Version None)
Quarter: 2005Q1

REPORT INFORMATION
  Report Type: 
  Country: None (occurrence: None)
  Receive Date: 20050318
  Receipt Date: 20050307
  Transmission Date: 20050727
  Serious: Yes (Hospitalization, Other)
  Sender: FDA-Public Use
  Company Number: DE-2004-034433

PATIENT
  Sex: Female
  Weight: 72 kg

DRUGS (2)
  1. MIRENA [Suspect]
     Indication: CONTRACEPTION
     Dosage: 20 MICRO/DAY, CONT, INTRA-UTERINE
     Route: 015
     Dates: start: 20000329, end: 20031218
  2. LEVOTHYROXINE SODIUM [Concomitant]

REACTIONS (6)
  - ANXIETY [None]
  - HYPERKINETIC HEART SYNDROME [None]
  - IMPAIRED WORK ABILITY [None]
  - PANIC ATTACK [None]
  - PERNICIOUS ANAEMIA [None]
  - RESTLESSNESS [None]
